FAERS Safety Report 4282691-1 (Version None)
Quarter: 2004Q1

REPORT INFORMATION
  Report Type: 
  Country: None (occurrence: None)
  Receive Date: 20040130
  Receipt Date: 20030226
  Transmission Date: 20041129
  Serious: No
  Sender: FDA-Public Use
  Company Number: US-BRISTOL-MYERS SQUIBB COMPANY-12196127

PATIENT
  Sex: Male

DRUGS (1)
  1. SERZONE [Suspect]
     Dosage: STARTED THERAPY ^ABOUT 4-5 DAYS AGO^
     Route: 048
     Dates: start: 20030201

REACTIONS (1)
  - OEDEMA PERIPHERAL [None]
